FAERS Safety Report 5024310-2 (Version None)
Quarter: 2006Q2

REPORT INFORMATION
  Report Type: 
  Country: None (occurrence: None)
  Receive Date: 20060613
  Receipt Date: 20060517
  Transmission Date: 20061013
  Serious: Yes (Other)
  Sender: FDA-Public Use
  Company Number: PHRM2006FR01632

PATIENT
  Age: 77 Year
  Sex: Male
  Weight: 68 kg

DRUGS (4)
  1. TAREG [Suspect]
     Indication: HYPERTENSION
     Dosage: 80 MG, QD
     Route: 048
     Dates: start: 20050301, end: 20060509
  2. PRAVASTATIN [Concomitant]
     Dosage: 40 MG/DAY
     Route: 048
  3. ASPIRIN [Concomitant]
     Dosage: 75 MG/DAY
     Route: 048
  4. STILNOX [Concomitant]
     Route: 048

REACTIONS (6)
  - COUGH [None]
  - DYSPNOEA EXERTIONAL [None]
  - INTERSTITIAL LUNG DISEASE [None]
  - LUNG DISORDER [None]
  - PULMONARY FUNCTION TEST ABNORMAL [None]
  - RALES [None]
